FAERS Safety Report 7320322-4 (Version None)
Quarter: 2011Q1

REPORT INFORMATION
  Report Type: 
  Country: None (occurrence: None)
  Receive Date: 20110228
  Receipt Date: 20110223
  Transmission Date: 20110831
  Serious: Yes (Life-Threatening)
  Sender: FDA-Public Use
  Company Number: JP-ASTRAZENECA-2011SE09977

PATIENT
  Age: 58 Year
  Sex: Female

DRUGS (3)
  1. LOXOPROFEN SODIUM HYDRATE [Suspect]
     Dosage: DOSE UNKNOWN
     Route: 048
  2. ZESTRIL [Suspect]
     Dosage: DOSE UNKNOWN
     Route: 048
  3. NIFEDIPINE [Suspect]
     Dosage: DOSE UNKNOWN
     Route: 048

REACTIONS (2)
  - COMA [None]
  - CARDIO-RESPIRATORY ARREST [None]
